FAERS Safety Report 5255393-2 (Version None)
Quarter: 2007Q1

REPORT INFORMATION
  Report Type: 
  Country: None (occurrence: None)
  Receive Date: 20070305
  Receipt Date: 20070222
  Transmission Date: 20070707
  Serious: Yes (Death)
  Sender: FDA-Public Use
  Company Number: GB-ROCHE-472110

PATIENT
  Age: 51 Year
  Sex: Male
  Weight: 77 kg

DRUGS (1)
  1. CAPECITABINE [Suspect]
     Dosage: 1 CYCLE RECEIVED TO DATE 0% DOSE REDUCTION
     Route: 048
     Dates: start: 20061117

REACTIONS (1)
  - ARTERIOSCLEROSIS CORONARY ARTERY [None]
